FAERS Safety Report 11182333 (Version 1)
Quarter: 2015Q2

REPORT INFORMATION
  Report Type: Spontaneous
  Country: US (occurrence: US)
  Receive Date: 20150611
  Receipt Date: 20150611
  Transmission Date: 20150821
  Serious: Yes (Hospitalization)
  Sender: FDA-Public Use
  Company Number: US-TEVA-567896USA

PATIENT
  Age: 75 Year
  Sex: Female

DRUGS (7)
  1. PRAVASTATIN [Suspect]
     Active Substance: PRAVASTATIN\PRAVASTATIN SODIUM
     Indication: BLOOD CHOLESTEROL INCREASED
     Dosage: 40 MILLIGRAM DAILY;
     Route: 065
     Dates: start: 20110612
  2. CALCIUM SUPPLEMENT [Concomitant]
     Active Substance: CALCIUM
     Dosage: 1000 IU (INTERNATIONAL UNIT) DAILY;
     Route: 065
  3. BENAZEPRIL [Concomitant]
     Active Substance: BENAZEPRIL\BENAZEPRIL HYDROCHLORIDE
     Indication: HYPERTENSION
     Dosage: 20 MILLIGRAM DAILY;
     Route: 065
     Dates: start: 19880615
  4. LYRICA [Suspect]
     Active Substance: PREGABALIN
     Indication: FEELING HOT
     Dosage: 100 MILLIGRAM DAILY;
     Route: 065
     Dates: start: 20131015
  5. TEMAZEPAM. [Concomitant]
     Active Substance: TEMAZEPAM
     Dosage: 30 MILLIGRAM DAILY;
     Route: 065
     Dates: start: 20080420
  6. BISOPROLOL FUMARATE. [Concomitant]
     Active Substance: BISOPROLOL FUMARATE
     Indication: HYPERTENSION
     Dosage: 5 MILLIGRAM DAILY;
     Route: 065
     Dates: start: 19880615
  7. TRAMADOL [Concomitant]
     Active Substance: TRAMADOL
     Indication: ARTHRITIS
     Dosage: 100 MILLIGRAM DAILY;
     Route: 065
     Dates: start: 20001012

REACTIONS (4)
  - Mobility decreased [Recovered/Resolved]
  - Pain [Recovered/Resolved]
  - Drug withdrawal syndrome [Recovered/Resolved]
  - Adverse drug reaction [Recovered/Resolved]

NARRATIVE: CASE EVENT DATE: 20140210
